FAERS Safety Report 9442032 (Version 1)
Quarter: 2013Q3

REPORT INFORMATION
  Report Type: Spontaneous
  Country: IT (occurrence: IT)
  Receive Date: 20130806
  Receipt Date: 20130806
  Transmission Date: 20140515
  Serious: Yes (Other)
  Sender: FDA-Public Use
  Company Number: IT-ASTRAZENECA-2013SE58352

PATIENT
  Age: 23152 Day
  Sex: Male

DRUGS (2)
  1. ZESTORETIC [Suspect]
     Indication: HYPERTENSION
     Dosage: 20MG+12.5MG TABLETS, 10 MG DAILY.
     Route: 048
     Dates: start: 20120301, end: 20130511
  2. ZESTORETIC [Suspect]
     Indication: HYPERTENSION
     Route: 048

REACTIONS (3)
  - Hypertensive crisis [Recovered/Resolved]
  - Erythema [Recovered/Resolved]
  - Face oedema [Recovered/Resolved]
